FAERS Safety Report 7093007-X (Version None)
Quarter: 2010Q4

REPORT INFORMATION
  Report Type: 
  Country: None (occurrence: None)
  Receive Date: 20101110
  Receipt Date: 20101108
  Transmission Date: 20110411
  Serious: Yes (Hospitalization)
  Sender: FDA-Public Use
  Company Number: PHHO2010TH13243

PATIENT
  Sex: Female
  Weight: 47.7 kg

DRUGS (2)
  1. PLACEBO COMP-PLA+ [Suspect]
     Indication: PANCREATIC NEUROENDOCRINE TUMOUR
     Dosage: CODE NOT BROKEN
     Route: 048
     Dates: start: 20090429, end: 20091019
  2. RAD 666 [Suspect]
     Indication: CHEMOTHERAPY MULTIPLE AGENTS SYSTEMIC
     Dosage: UNK
     Dates: start: 20091021, end: 20100721

REACTIONS (1)
  - PLEURAL EFFUSION [None]
